FAERS Safety Report 25979097 (Version 1)
Quarter: 2025Q4

REPORT INFORMATION
  Report Type: Spontaneous
  Country: US (occurrence: None)
  Receive Date: 20251029
  Receipt Date: 20251029
  Transmission Date: 20260117
  Serious: Yes (Death, Hospitalization)
  Sender: FDA-CTU
  Company Number: None

PATIENT
  Age: 71 Year
  Sex: Female

DRUGS (14)
  1. AMBRISENTAN [Suspect]
     Active Substance: AMBRISENTAN
     Indication: Pulmonary hypertension
     Dosage: FREQUENCY : DAILY;?
     Route: 048
     Dates: start: 20250416, end: 20250715
  2. SILDENAFIL [Suspect]
     Active Substance: SILDENAFIL
  3. CELLCEPT [Suspect]
     Active Substance: MYCOPHENOLATE MOFETIL
  4. PREDNISONE [Suspect]
     Active Substance: PREDNISONE
  5. acetaminophen rectal suppository [Concomitant]
  6. AMLODIPINE [Concomitant]
     Active Substance: AMLODIPINE BESYLATE
  7. bisacodyl rectal supp [Concomitant]
  8. FUROSEMIDE [Concomitant]
     Active Substance: FUROSEMIDE
  9. HALOPERIDOL [Concomitant]
     Active Substance: HALOPERIDOL
  10. HYOSCYAMINE [Concomitant]
     Active Substance: HYOSCYAMINE
  11. LORAZEPAM [Concomitant]
     Active Substance: LORAZEPAM
  12. morphine concentrate oral soln [Concomitant]
  13. oxygen gas [Concomitant]
  14. PROCHLORPERAZINE [Concomitant]
     Active Substance: PROCHLORPERAZINE

REACTIONS (3)
  - Dyspnoea [None]
  - Acute respiratory failure [None]
  - Therapy cessation [None]

NARRATIVE: CASE EVENT DATE: 20250519
